FAERS Safety Report 13124858 (Version 1)
Quarter: 2017Q1

REPORT INFORMATION
  Report Type: Report from Study
  Country: CZ (occurrence: CZ)
  Receive Date: 20170118
  Receipt Date: 20170118
  Transmission Date: 20170428
  Serious: Yes (Hospitalization, Other)
  Sender: FDA-Public Use
  Company Number: PHHY2017CZ003456

PATIENT
  Age: 71 Year
  Sex: Male

DRUGS (4)
  1. STI571 [Suspect]
     Active Substance: IMATINIB MESYLATE
     Indication: CHRONIC MYELOID LEUKAEMIA
     Dosage: 400 MG, (5 DAYS IN A WEEK)
     Route: 065
     Dates: start: 20160116
  2. PERINDOPRIL [Concomitant]
     Active Substance: PERINDOPRIL
     Indication: HYPERTENSION
     Route: 065
  3. AMIKIN [Concomitant]
     Active Substance: AMIKACIN SULFATE
     Indication: PRODUCT USED FOR UNKNOWN INDICATION
     Route: 065
  4. CEFTAZIDIM [Concomitant]
     Active Substance: CEFTAZIDIME
     Indication: PRODUCT USED FOR UNKNOWN INDICATION
     Route: 065

REACTIONS (9)
  - Thrombocytopenia [Unknown]
  - Chronic myeloid leukaemia [Unknown]
  - Leukopenia [Unknown]
  - Decreased appetite [Unknown]
  - Pyrexia [Unknown]
  - Treatment failure [Unknown]
  - Malignant neoplasm progression [Unknown]
  - C-reactive protein increased [Unknown]
  - Weight decreased [Unknown]

NARRATIVE: CASE EVENT DATE: 20161222
